FAERS Safety Report 24443790 (Version 1)
Quarter: 2024Q4

REPORT INFORMATION
  Report Type: Spontaneous
  Country: BR (occurrence: BR)
  Receive Date: 20241016
  Receipt Date: 20241016
  Transmission Date: 20250115
  Serious: Yes (Other)
  Sender: PFIZER
  Company Number: BR-TAKEDA-2024TUS092964

PATIENT
  Age: 47 Year
  Sex: Male
  Weight: 58 kg

DRUGS (10)
  1. PANTOPRAZOLE [Suspect]
     Active Substance: PANTOPRAZOLE
     Dosage: 40 MILLIGRAM
     Route: 065
  2. DIBUCAINE\POLICRESULEN [Suspect]
     Active Substance: DIBUCAINE\POLICRESULEN
     Dosage: UNK UNK, 3X/DAY (Q8HR)
     Route: 065
     Dates: start: 20240904
  3. DIPYRONE [Concomitant]
     Active Substance: DIPYRONE
     Dosage: 1000 MILLIGRAM, Q6HR
  4. DIOSMIN [Concomitant]
     Active Substance: DIOSMIN
     Dosage: 1 GRAM, TID
  5. DIOSMIN [Concomitant]
     Active Substance: DIOSMIN
     Dosage: UNK UNK, 2X/DAY
  6. DIOSMIN [Concomitant]
     Active Substance: DIOSMIN
     Dosage: UNK UNK, 1X/DAY
  7. IBUPROFEN [Concomitant]
     Active Substance: IBUPROFEN
     Dosage: 600 MILLIGRAM, Q8HR
  8. AMOXICILLIN [Concomitant]
     Active Substance: AMOXICILLIN
     Dosage: 1 DF, 3X/DAY (Q8HR)
  9. BUPROPION [Concomitant]
     Active Substance: BUPROPION
     Dosage: UNK
  10. DIAZEPAM [Concomitant]
     Active Substance: DIAZEPAM
     Dosage: UNK

REACTIONS (4)
  - Autism spectrum disorder [Unknown]
  - Product physical consistency issue [Unknown]
  - Drug ineffective [Unknown]
  - Poor quality product administered [Unknown]

NARRATIVE: CASE EVENT DATE: 20240912
